FAERS Safety Report 12092524 (Version 1)
Quarter: 2016Q1

REPORT INFORMATION
  Report Type: Spontaneous
  Country: US (occurrence: None)
  Receive Date: 20160218
  Receipt Date: 20160218
  Transmission Date: 20160526
  Serious: No
  Sender: FDA-Public Use
  Company Number: None

PATIENT
  Age: 59 Year
  Sex: Female
  Weight: 113.4 kg

DRUGS (7)
  1. CYMBALTA [Suspect]
     Active Substance: DULOXETINE HYDROCHLORIDE
     Indication: DEPRESSION
     Dosage: ONE ONCE DAILY TAKEN BY MOUTH
     Route: 048
     Dates: start: 20140918, end: 20160210
  2. ATORVASTATIN [Concomitant]
     Active Substance: ATORVASTATIN
  3. CYMBALTA [Suspect]
     Active Substance: DULOXETINE HYDROCHLORIDE
     Indication: PAIN
     Dosage: ONE ONCE DAILY TAKEN BY MOUTH
     Route: 048
     Dates: start: 20140918, end: 20160210
  4. PROBITIC [Concomitant]
  5. ASA [Concomitant]
     Active Substance: ASPIRIN
  6. FISH OIL [Concomitant]
     Active Substance: FISH OIL
  7. VITAMIN D [Concomitant]
     Active Substance: CHOLECALCIFEROL

REACTIONS (4)
  - Mood swings [None]
  - Headache [None]
  - Vertigo [None]
  - Insomnia [None]

NARRATIVE: CASE EVENT DATE: 20151210
